FAERS Safety Report 6700466-8 (Version None)
Quarter: 2010Q2

REPORT INFORMATION
  Report Type: 
  Country: None (occurrence: None)
  Receive Date: 20100428
  Receipt Date: 20100413
  Transmission Date: 20101027
  Serious: Yes (Other)
  Sender: FDA-Public Use
  Company Number: DK-PFIZER INC-2010046169

PATIENT
  Age: 65 Year
  Sex: Male

DRUGS (1)
  1. DOXAZOSIN MESILATE [Suspect]
     Dosage: UNK
     Dates: start: 20100101, end: 20100101

REACTIONS (3)
  - OEDEMA PERIPHERAL [None]
  - PAINFUL ERECTION [None]
  - PALMAR ERYTHEMA [None]
